FAERS Safety Report 10342144 (Version 2)
Quarter: 2014Q3

REPORT INFORMATION
  Report Type: Spontaneous
  Country: US (occurrence: US)
  Receive Date: 20140725
  Receipt Date: 20140903
  Transmission Date: 20150326
  Serious: No
  Sender: FDA-Public Use
  Company Number: US-PFIZER INC-2014204489

PATIENT
  Age: 61 Year
  Sex: Male
  Weight: 120 kg

DRUGS (3)
  1. ADVIL [Suspect]
     Active Substance: IBUPROFEN
     Indication: MYALGIA
  2. ADVIL [Suspect]
     Active Substance: IBUPROFEN
     Indication: PAIN
     Dosage: 200 MG, FIVE TIMES A DAY
     Route: 048
     Dates: start: 2002
  3. ADVIL [Suspect]
     Active Substance: IBUPROFEN
     Indication: SPINAL CORD INJURY

REACTIONS (1)
  - Glycosylated haemoglobin increased [Unknown]

NARRATIVE: CASE EVENT DATE: 201406
